FAERS Safety Report 7306798-7 (Version None)
Quarter: 2011Q1

REPORT INFORMATION
  Report Type: 
  Country: None (occurrence: None)
  Receive Date: 20110223
  Receipt Date: 20110217
  Transmission Date: 20110831
  Serious: Yes (Death, Life-Threatening)
  Sender: FDA-Public Use
  Company Number: DE-BAYER-2011-013362

PATIENT
  Sex: Female
  Weight: 60 kg

DRUGS (6)
  1. MUCOSOLVAN [Concomitant]
     Dosage: 0.5 DF, UNK
     Route: 048
     Dates: end: 20110203
  2. MUCOSOLVAN [Concomitant]
     Indication: INFECTION
     Dosage: 2 OR 3 TABLETS
     Route: 048
     Dates: start: 20110204, end: 20110204
  3. BELOC ZOK [Concomitant]
     Indication: HYPERTENSION
     Dosage: 47.5 MG, QD 1-0-0
     Route: 048
  4. NAPROXEN SODIUM [Concomitant]
     Indication: OSTEOARTHRITIS
     Dosage: 1-4X PER DAY, AS NEEDED
     Route: 048
  5. ATACAND HCT [Concomitant]
     Indication: HYPERTENSION
     Dosage: 16/12.5MG, QD 1-0-0
     Route: 048
  6. AVELOX [Suspect]
     Indication: PNEUMONIA
     Dosage: 400 MG, QD
     Route: 048
     Dates: start: 20110204

REACTIONS (1)
  - CARDIAC ARREST [None]
